FAERS Safety Report 8389174-8 (Version None)
Quarter: 2012Q2

REPORT INFORMATION
  Report Type: 
  Country: None (occurrence: None)
  Receive Date: 20120528
  Receipt Date: 20120524
  Transmission Date: 20120825
  Serious: Yes (Death, Other)
  Sender: FDA-Public Use
  Company Number: PHHY2012TW044684

PATIENT
  Age: 40 Year
  Sex: Female

DRUGS (4)
  1. CYCLOSPORINE [Suspect]
     Indication: NEPHROTIC SYNDROME
     Dosage: 1.5 MG/KG, PER DAY
  2. CYCLOSPORINE [Suspect]
     Dosage: 3 MG/KG, PER DAY
  3. FUROSEMIDE [Concomitant]
     Indication: OEDEMA
  4. STEROIDS NOS [Concomitant]
     Indication: NEPHROTIC SYNDROME

REACTIONS (16)
  - TENDERNESS [None]
  - SERRATIA INFECTION [None]
  - FEELING HOT [None]
  - SOFT TISSUE NECROSIS [None]
  - NEPHROTIC SYNDROME [None]
  - PROTEINURIA [None]
  - PYREXIA [None]
  - NECROTISING FASCIITIS [None]
  - ERYTHEMA [None]
  - PAIN IN EXTREMITY [None]
  - BLISTER [None]
  - CELLULITIS [None]
  - SKIN LESION [None]
  - HYPOALBUMINAEMIA [None]
  - OEDEMA PERIPHERAL [None]
  - HYPOTENSION [None]
